APPROVED DRUG PRODUCT: LIDOCAINE HYDROCHLORIDE 5% AND DEXTROSE 7.5%
Active Ingredient: LIDOCAINE HYDROCHLORIDE
Strength: 5%
Dosage Form/Route: INJECTABLE;SPINAL
Application: A083914 | Product #001
Applicant: HOSPIRA INC
Approved: Approved Prior to Jan 1, 1982 | RLD: Yes | RS: Yes | Type: RX